FAERS Safety Report 12644572 (Version 1)
Quarter: 2016Q3

REPORT INFORMATION
  Report Type: Spontaneous
  Country: JP (occurrence: JP)
  Receive Date: 20160811
  Receipt Date: 20160811
  Transmission Date: 20161109
  Serious: Yes (Other)
  Sender: FDA-Public Use
  Company Number: JP-SA-2016SA146581

PATIENT
  Age: 79 Year
  Sex: Female

DRUGS (1)
  1. PLAVIX [Suspect]
     Active Substance: CLOPIDOGREL BISULFATE
     Dosage: STRENGTH- 25 MG TABLET
     Route: 048
     Dates: start: 201410, end: 201411

REACTIONS (1)
  - Drug-induced liver injury [Unknown]
